FAERS Safety Report 26017832 (Version 1)
Quarter: 2025Q4

REPORT INFORMATION
  Report Type: Spontaneous
  Country: CN (occurrence: CN)
  Receive Date: 20251110
  Receipt Date: 20251110
  Transmission Date: 20260119
  Serious: Yes (Hospitalization)
  Sender: ACCORD
  Company Number: CN-Accord-511792

PATIENT
  Age: 14 Year
  Sex: Female

DRUGS (2)
  1. LEVETIRACETAM [Suspect]
     Active Substance: LEVETIRACETAM
     Indication: Epilepsy
     Dates: start: 2022, end: 202306
  2. LAMOTRIGINE [Suspect]
     Active Substance: LAMOTRIGINE
     Indication: Epilepsy
     Dates: start: 2022, end: 202306

REACTIONS (6)
  - Toxic epidermal necrolysis [Recovering/Resolving]
  - Epidermolysis bullosa [Recovering/Resolving]
  - Drug-induced liver injury [Not Recovered/Not Resolved]
  - Hepatitis cholestatic [Not Recovered/Not Resolved]
  - Cholangitis [Not Recovered/Not Resolved]
  - Biliary dilatation [Not Recovered/Not Resolved]

NARRATIVE: CASE EVENT DATE: 20230101
